FAERS Safety Report 4969665-X (Version None)
Quarter: 2006Q2

REPORT INFORMATION
  Report Type: 
  Country: None (occurrence: None)
  Receive Date: 20060411
  Receipt Date: 20060405
  Transmission Date: 20061013
  Serious: No
  Sender: FDA-Public Use
  Company Number: IT-BOEHRINGER INGELHEIM PHARMACEUTICALS, INC.-2006-IT-00075IT

PATIENT
  Age: 43 Year
  Sex: Male
  Weight: 81 kg

DRUGS (5)
  1. VIRAMUNE [Suspect]
  2. COMBIVIR [Suspect]
  3. SUSTIVA [Suspect]
  4. VIDEX [Suspect]
  5. ZERIT [Suspect]

REACTIONS (6)
  - DIZZINESS [None]
  - MUSCLE ATROPHY [None]
  - MUSCLE DISORDER [None]
  - NEUROPATHY PERIPHERAL [None]
  - NIGHTMARE [None]
  - VASODILATATION [None]
